FAERS Safety Report 9458001 (Version 1)
Quarter: 2013Q3

REPORT INFORMATION
  Report Type: Spontaneous
  Country: FR (occurrence: FR)
  Receive Date: 20130814
  Receipt Date: 20130814
  Transmission Date: 20140515
  Serious: Yes (Other)
  Sender: FDA-Public Use
  Company Number: FR-SANOFI-AVENTIS-2013SA079943

PATIENT
  Age: 22 Year
  Sex: Female

DRUGS (2)
  1. RIFINAH [Suspect]
     Indication: SKIN REACTION
     Route: 048
     Dates: start: 20130601, end: 20130723
  2. REMICADE [Suspect]
     Indication: ENTERITIS
     Dosage: STRENGTH: 100 MG ; FORM: POWDER FOR PERFUSION?DOSE : RECIEVED FIRST TWO INJECTIONS
     Route: 065
     Dates: start: 201306

REACTIONS (1)
  - Neutropenia [Recovering/Resolving]
